FAERS Safety Report 15231839 (Version 6)
Quarter: 2019Q4

REPORT INFORMATION
  Report Type: Spontaneous
  Country: US (occurrence: US)
  Receive Date: 20180802
  Receipt Date: 20191014
  Transmission Date: 20200122
  Serious: Yes (Hospitalization)
  Sender: FDA-Public Use
  Company Number: US-PFIZER INC-2018308281

PATIENT
  Age: 79 Year
  Sex: Female

DRUGS (22)
  1. IBRANCE [Suspect]
     Active Substance: PALBOCICLIB
     Dosage: 125 MG, CYCLIC (ONCE DAILY WITH FOOD FOR 21DAYS, THEN 7 DAYS OFF)
     Route: 048
     Dates: start: 20180719, end: 2018
  2. VITAMIN D [Concomitant]
     Active Substance: VITAMIN D NOS
     Dosage: 2000 IU, UNK
  3. ATORVASTATIN [Concomitant]
     Active Substance: ATORVASTATIN
     Dosage: UNK
     Dates: start: 201808
  4. IBRANCE [Suspect]
     Active Substance: PALBOCICLIB
     Dosage: 75 MG, CYCLIC (DAILY, 21 DAYS A MONTH)
     Route: 048
     Dates: start: 201808
  5. AZOPT [Concomitant]
     Active Substance: BRINZOLAMIDE
     Dosage: 1 %, UNK (SUS 1%)
  6. LETROZOLE. [Concomitant]
     Active Substance: LETROZOLE
     Dosage: UNK (POW)
  7. ZOMETA [Concomitant]
     Active Substance: ZOLEDRONIC ACID
     Dosage: UNK UNK, MONTHLY
     Route: 042
     Dates: start: 201903
  8. IBRANCE [Suspect]
     Active Substance: PALBOCICLIB
     Dosage: 120 MG, UNK
     Route: 048
  9. LEVOTHYROXIN [Concomitant]
     Active Substance: LEVOTHYROXINE
     Dosage: UNK (POW)
  10. LISINOPRIL. [Concomitant]
     Active Substance: LISINOPRIL
     Dosage: UNK (POW)
  11. METOPROLOL T [Concomitant]
     Dosage: 100 MG, UNK
  12. PROBIOTIC [Concomitant]
     Active Substance: PROBIOTICS NOS
     Dosage: UNK
  13. VITAMIN E [Concomitant]
     Active Substance: .ALPHA.-TOCOPHEROL
     Dosage: UNK (POW)
  14. IBRANCE [Suspect]
     Active Substance: PALBOCICLIB
     Indication: BREAST CANCER METASTATIC
     Dosage: 125 MG, CYCLIC  (TAKE ONE CAPSULE BY MOUTH ONCE DAILY WITH FOOD FOR 21DAYS, THEN 7 DAYS OFF)
     Route: 048
     Dates: start: 201707
  15. TIMOLOL MALE [Concomitant]
     Dosage: UNK (SOL 0.5%)
  16. TRAVATAN Z [Concomitant]
     Active Substance: TRAVOPROST
     Dosage: UNK (SOL 0.004%)
  17. VITAMIN C [Concomitant]
     Active Substance: ASCORBIC ACID
     Dosage: 1000 MG, UNK
  18. LETROZOLE. [Concomitant]
     Active Substance: LETROZOLE
     Dosage: 1 DF, DAILY (2.5)
     Dates: start: 201808
  19. CALCIUM [Concomitant]
     Active Substance: CALCIUM
     Dosage: 600 MG, UNK
  20. IBRANCE [Suspect]
     Active Substance: PALBOCICLIB
     Dosage: 125 MG, CYCLIC (ONCE DAILY WITH FOOD FOR 21DAYS, THEN 7 DAYS OFF)
     Route: 048
     Dates: start: 20180717, end: 201807
  21. OMEGA 3 [Concomitant]
     Active Substance: OMEGA-3 FATTY ACIDS
     Dosage: 1200 MG, UNK
     Dates: start: 2018
  22. LETROZOLE. [Concomitant]
     Active Substance: LETROZOLE
     Dosage: 2.5 MG, UNK
     Dates: start: 201807

REACTIONS (5)
  - White blood cell count decreased [Recovered/Resolved]
  - White blood cell count increased [Recovered/Resolved]
  - Fatigue [Recovered/Resolved]
  - Constipation [Recovered/Resolved]
  - Arthralgia [Recovered/Resolved]

NARRATIVE: CASE EVENT DATE: 201807
